FAERS Safety Report 24394314 (Version 1)
Quarter: 2024Q4

REPORT INFORMATION
  Report Type: Report from Study
  Country: CA (occurrence: CA)
  Receive Date: 20241004
  Receipt Date: 20241004
  Transmission Date: 20250115
  Serious: Yes (Other)
  Sender: ABBVIE
  Company Number: CA-ABBVIE-5944576

PATIENT
  Sex: Female

DRUGS (1)
  1. SKYRIZI [Suspect]
     Active Substance: RISANKIZUMAB-RZAA
     Indication: Crohn^s disease
     Route: 058
     Dates: start: 20230914

REACTIONS (5)
  - Surgery [Unknown]
  - Hernia [Unknown]
  - Arthralgia [Unknown]
  - Osteoporosis [Unknown]
  - Thyroid disorder [Unknown]

NARRATIVE: CASE EVENT DATE: 20231201
